FAERS Safety Report 22115536 (Version 1)
Quarter: 2023Q1

REPORT INFORMATION
  Report Type: Spontaneous
  Country: US (occurrence: US)
  Receive Date: 20230320
  Receipt Date: 20230320
  Transmission Date: 20230417
  Serious: No
  Sender: FDA-Public Use
  Company Number: US-IDORSIA-003947-2023-US

PATIENT
  Age: 53 Year
  Sex: Female

DRUGS (1)
  1. QUVIVIQ [Suspect]
     Active Substance: DARIDOREXANT
     Indication: Insomnia
     Dosage: 50 MG, QD
     Route: 048
     Dates: start: 20230123, end: 20230123

REACTIONS (5)
  - Hypersensitivity [Recovered/Resolved]
  - Stomatitis [Recovered/Resolved]
  - Swollen tongue [Recovered/Resolved]
  - Noninfective gingivitis [Recovered/Resolved]
  - Infected skin ulcer [Recovered/Resolved]

NARRATIVE: CASE EVENT DATE: 20230123
